FAERS Safety Report 4902177-8 (Version None)
Quarter: 2006Q1

REPORT INFORMATION
  Report Type: 
  Country: None (occurrence: None)
  Receive Date: 20060206
  Receipt Date: 20060131
  Transmission Date: 20060701
  Serious: Yes (Other)
  Sender: FDA-Public Use
  Company Number: US-JNJFOC-20060200268

PATIENT
  Sex: Female

DRUGS (8)
  1. DITROPAN XL [Suspect]
     Route: 048
  2. METOPROLOL [Concomitant]
     Indication: BLOOD PRESSURE
     Route: 048
  3. ARTHROTEC [Concomitant]
     Route: 048
  4. ARTHROTEC [Concomitant]
     Indication: ARTHRITIS
     Route: 048
  5. CRESTOR [Concomitant]
     Route: 048
  6. HYDROCHLOROTHIAZIDE [Concomitant]
     Indication: DIURETIC THERAPY
     Route: 048
  7. ASPIRIN [Concomitant]
     Route: 048
  8. CLARINEX [Concomitant]
     Indication: SEASONAL ALLERGY
     Route: 048

REACTIONS (1)
  - OPEN ANGLE GLAUCOMA [None]
